FAERS Safety Report 5083333-8 (Version None)
Quarter: 2006Q3

REPORT INFORMATION
  Report Type: 
  Country: None (occurrence: None)
  Receive Date: 20060818
  Receipt Date: 20060710
  Transmission Date: 20061208
  Serious: Yes (Hospitalization)
  Sender: FDA-Public Use
  Company Number: FR-BAYER-200610654BFR

PATIENT
  Age: 68 Year
  Sex: Female
  Weight: 55 kg

DRUGS (3)
  1. CIFLOX [Suspect]
     Indication: UNEVALUABLE EVENT
     Dosage: TOTAL DAILY DOSE: 500 MG
     Route: 048
     Dates: start: 20060518, end: 20060520
  2. ROCEPHIN [Suspect]
     Indication: URINARY TRACT INFECTION
     Route: 030
     Dates: start: 20060509, end: 20060501
  3. ROCEPHIN [Suspect]
     Route: 042
     Dates: start: 20060501, end: 20060520

REACTIONS (11)
  - ANAEMIA [None]
  - CHILLS [None]
  - DIARRHOEA [None]
  - ESCHERICHIA URINARY TRACT INFECTION [None]
  - GENERAL PHYSICAL HEALTH DETERIORATION [None]
  - HYPERTHERMIA [None]
  - MALNUTRITION [None]
  - NAUSEA [None]
  - PYREXIA [None]
  - SYSTEMIC INFLAMMATORY RESPONSE SYNDROME [None]
  - VOMITING [None]
